FAERS Safety Report 8947781 (Version 1)
Quarter: 2012Q4

REPORT INFORMATION
  Report Type: Spontaneous
  Country: US (occurrence: None)
  Receive Date: 20121127
  Receipt Date: 20121127
  Transmission Date: 20130627
  Serious: Yes (Other)
  Sender: FDA-Public Use
  Company Number: ADR-2012-02133

PATIENT
  Age: 48 Year
  Sex: Male

DRUGS (1)
  1. BACLOFEN INTRATHECAL [Suspect]
     Indication: SPASTICITY

REACTIONS (8)
  - Drug withdrawal syndrome [None]
  - Device occlusion [None]
  - Post lumbar puncture syndrome [None]
  - Nausea [None]
  - Photophobia [None]
  - Neck pain [None]
  - No therapeutic response [None]
  - Subdural haematoma [None]
